FAERS Safety Report 4362289-7 (Version None)
Quarter: 2004Q2

REPORT INFORMATION
  Report Type: 
  Country: None (occurrence: None)
  Receive Date: 20040520
  Receipt Date: 20040520
  Transmission Date: 20050107
  Serious: Yes (Hospitalization)
  Sender: FDA-Public Use
  Company Number: None

PATIENT

DRUGS (3)
  1. FUROSEMIDE [Suspect]
     Dosage: 80 MG PO BID
     Route: 048
  2. SPIRONOLACTONE [Suspect]
     Dosage: 12.5 MG PO QD
     Route: 048
  3. METOLAZONE [Suspect]
     Dosage: 2.5 MG PO QD

REACTIONS (1)
  - RENAL FAILURE ACUTE [None]
